FAERS Safety Report 7308844-3 (Version None)
Quarter: 2011Q1

REPORT INFORMATION
  Report Type: 
  Country: None (occurrence: None)
  Receive Date: 20110223
  Receipt Date: 20110215
  Transmission Date: 20110831
  Serious: Yes (Hospitalization)
  Sender: FDA-Public Use
  Company Number: MX-SANOFI-AVENTIS-2011SA009964

PATIENT
  Age: 24 Year
  Sex: Male

DRUGS (1)
  1. INSULIN GLARGINE [Suspect]
     Route: 058

REACTIONS (1)
  - SUBCUTANEOUS ABSCESS [None]
